FAERS Safety Report 7472096-4 (Version None)
Quarter: 2011Q2

REPORT INFORMATION
  Report Type: 
  Country: None (occurrence: None)
  Receive Date: 20110511
  Receipt Date: 20101214
  Transmission Date: 20111010
  Serious: No
  Sender: FDA-Public Use
  Company Number: A0900257A

PATIENT
  Age: 48 Year
  Sex: Female
  Weight: 61.8 kg

DRUGS (9)
  1. XANAX [Concomitant]
  2. CLONAZEPAM [Concomitant]
  3. AZITHROMYCIN [Concomitant]
  4. TYKERB [Suspect]
     Indication: BREAST CANCER STAGE IV
     Dosage: 1250MG PER DAY
     Route: 048
     Dates: start: 20101127, end: 20101211
  5. CAPECITABINE [Concomitant]
  6. NAPROXEN (ALEVE) [Concomitant]
  7. COREG [Concomitant]
     Indication: CARDIOMYOPATHY
     Dates: start: 20050101
  8. CELEXA [Concomitant]
  9. ZOLPIDEM [Concomitant]

REACTIONS (13)
  - DIZZINESS [None]
  - VOMITING [None]
  - DYSPNOEA [None]
  - NAUSEA [None]
  - NECK PAIN [None]
  - FATIGUE [None]
  - DERMATITIS [None]
  - WEIGHT DECREASED [None]
  - DYSPHAGIA [None]
  - DEHYDRATION [None]
  - DIARRHOEA [None]
  - ASTHENIA [None]
  - HEADACHE [None]
